FAERS Safety Report 4418252-0 (Version None)
Quarter: 2004Q3

REPORT INFORMATION
  Report Type: 
  Country: None (occurrence: None)
  Receive Date: 20040809
  Receipt Date: 20040120
  Transmission Date: 20050211
  Serious: No
  Sender: FDA-Public Use
  Company Number: US-GLAXOSMITHKLINE-A0494272A

PATIENT
  Age: 77 Year
  Sex: Male

DRUGS (3)
  1. PAXIL CR [Suspect]
     Indication: DEPRESSION
     Dosage: 12.5MG PER DAY
     Route: 048
     Dates: start: 20040116
  2. COUMADIN [Concomitant]
  3. LASIX [Concomitant]

REACTIONS (2)
  - ANOREXIA [None]
  - SOMNOLENCE [None]
